FAERS Safety Report 12947464 (Version 1)
Quarter: 2016Q4

REPORT INFORMATION
  Report Type: Spontaneous
  Country: US (occurrence: US)
  Receive Date: 20161116
  Receipt Date: 20161116
  Transmission Date: 20170207
  Serious: Yes (Disabling, Other)
  Sender: FDA-Public Use
  Company Number: US-REGENERON PHARMACEUTICALS, INC.-2016-23788

PATIENT

DRUGS (2)
  1. EYLEA [Suspect]
     Active Substance: AFLIBERCEPT
     Indication: RETINAL SCAR
     Dosage: UNK
     Dates: start: 201606, end: 20160728
  2. ATENOLOL. [Concomitant]
     Active Substance: ATENOLOL
     Indication: PRODUCT USED FOR UNKNOWN INDICATION
     Dosage: 25 MG MILLIGRAM(S), TID
     Dates: start: 2000

REACTIONS (4)
  - Eye pain [Unknown]
  - Off label use [Unknown]
  - Therapeutic response unexpected [Unknown]
  - Blindness [Unknown]

NARRATIVE: CASE EVENT DATE: 201606
